FAERS Safety Report 15632484 (Version 2)
Quarter: 2019Q2

REPORT INFORMATION
  Report Type: Spontaneous
  Country: NL (occurrence: NL)
  Receive Date: 20181119
  Receipt Date: 20190616
  Transmission Date: 20190711
  Serious: Yes (Hospitalization)
  Sender: FDA-Public Use
  Company Number: NL-ACTELION-A-CH2017-161233

PATIENT
  Age: 85 Year
  Sex: Female

DRUGS (1)
  1. OPSUMIT [Suspect]
     Active Substance: MACITENTAN
     Indication: PULMONARY HYPERTENSION
     Dosage: 10 MG, QD
     Route: 048

REACTIONS (3)
  - Product dose omission [Unknown]
  - Hospitalisation [Unknown]
  - Underdose [Unknown]

NARRATIVE: CASE EVENT DATE: 20181107
